FAERS Safety Report 18163667 (Version 15)
Quarter: 2021Q3

REPORT INFORMATION
  Report Type: Report from Study
  Country: US (occurrence: US)
  Receive Date: 20200818
  Receipt Date: 20210928
  Transmission Date: 20211014
  Serious: Yes (Hospitalization, Other)
  Sender: FDA-Public Use
  Company Number: US-GLAXOSMITHKLINE-US2020AMR163453

PATIENT
  Sex: Female

DRUGS (9)
  1. NIRAPARIB [Suspect]
     Active Substance: NIRAPARIB
     Dosage: 100 MG, QD
     Dates: start: 20210408, end: 20210506
  2. NIRAPARIB [Suspect]
     Active Substance: NIRAPARIB
     Dosage: 100MG, QD
     Route: 048
  3. NIRAPARIB [Suspect]
     Active Substance: NIRAPARIB
     Dosage: 100 MG, QD
  4. NIRAPARIB [Suspect]
     Active Substance: NIRAPARIB
     Dosage: 100 MG, QD
     Route: 048
  5. VITAMIN C 1000 [Concomitant]
     Indication: PRODUCT USED FOR UNKNOWN INDICATION
     Dosage: UNK
  6. NIRAPARIB [Suspect]
     Active Substance: NIRAPARIB
     Indication: FALLOPIAN TUBE CANCER
     Dosage: 300 MG, QD
     Dates: start: 20200807, end: 20200828
  7. NIRAPARIB [Suspect]
     Active Substance: NIRAPARIB
     Dosage: 100 MG
  8. NIRAPARIB [Suspect]
     Active Substance: NIRAPARIB
     Dosage: 100 MG, QD
     Route: 048
     Dates: start: 20210603
  9. NIRAPARIB [Suspect]
     Active Substance: NIRAPARIB
     Dosage: 100 MG, QD
     Dates: start: 20201019

REACTIONS (31)
  - Neuropathy peripheral [Not Recovered/Not Resolved]
  - Carcinoembryonic antigen increased [Unknown]
  - Weight decreased [Unknown]
  - Asthenia [Unknown]
  - Tooth infection [Not Recovered/Not Resolved]
  - Intracardiac mass [Not Recovered/Not Resolved]
  - Red blood cell count decreased [Not Recovered/Not Resolved]
  - Hepatic atrophy [Unknown]
  - Fatigue [Not Recovered/Not Resolved]
  - Trigger finger [Recovered/Resolved]
  - White blood cell count decreased [Unknown]
  - Pollakiuria [Unknown]
  - Tinea pedis [Not Recovered/Not Resolved]
  - Haemoglobin decreased [Unknown]
  - Contusion [Unknown]
  - Headache [Recovering/Resolving]
  - Decreased appetite [Recovered/Resolved]
  - Hunger [Unknown]
  - Blood pressure increased [Recovered/Resolved]
  - Blood bilirubin increased [Not Recovered/Not Resolved]
  - Macule [Unknown]
  - Bladder discomfort [Not Recovered/Not Resolved]
  - Computerised tomogram abnormal [Unknown]
  - Abdominal distension [Not Recovered/Not Resolved]
  - Lung disorder [Unknown]
  - Platelet count decreased [Unknown]
  - Constipation [Not Recovered/Not Resolved]
  - Insomnia [Not Recovered/Not Resolved]
  - Nausea [Recovered/Resolved]
  - Myalgia [Unknown]
  - Memory impairment [Not Recovered/Not Resolved]
